FAERS Safety Report 10708979 (Version 1)
Quarter: 2015Q1

REPORT INFORMATION
  Report Type: Report from Study
  Country: CA (occurrence: CA)
  Receive Date: 20150114
  Receipt Date: 20150114
  Transmission Date: 20150721
  Serious: Yes (Other)
  Sender: FDA-Public Use
  Company Number: CA-AMGEN-CANSL2015001859

PATIENT
  Age: 66 Year
  Sex: Female

DRUGS (5)
  1. BACLOFEN. [Concomitant]
     Active Substance: BACLOFEN
     Indication: HYPOTONIA
     Dosage: 10 MG, UNK
  2. DEXILANT [Concomitant]
     Active Substance: DEXLANSOPRAZOLE
     Indication: GASTROOESOPHAGEAL REFLUX DISEASE
     Dosage: 60 MG, UNK
  3. TEVA IRBESARTAN [Concomitant]
     Dosage: 75 MG, UNK
  4. PROLIA [Suspect]
     Active Substance: DENOSUMAB
     Indication: OSTEOPOROSIS POSTMENOPAUSAL
     Dosage: 60 MG, Q6MO
     Route: 058
     Dates: start: 20120413
  5. APO-HYDROXYQUINE [Concomitant]
     Dosage: 200 MG, UNK

REACTIONS (17)
  - Urinary retention [Unknown]
  - Hypersensitivity [Unknown]
  - Dry mouth [Unknown]
  - Nasal dryness [Unknown]
  - Dry skin [Unknown]
  - Pruritus generalised [Unknown]
  - Insomnia [Unknown]
  - Hair texture abnormal [Unknown]
  - Bone pain [Unknown]
  - Alopecia [Unknown]
  - Nasal congestion [Unknown]
  - Skin induration [Unknown]
  - Dandruff [Unknown]
  - Dyspnoea [Unknown]
  - Dry throat [Unknown]
  - Back pain [Unknown]
  - Myalgia [Unknown]

NARRATIVE: CASE EVENT DATE: 2012
